FAERS Safety Report 8757856 (Version 1)
Quarter: 2012Q4

REPORT INFORMATION
  Report Type: 
  Country: CA (occurrence: CA)
  Receive Date: 20120828
  Receipt Date: 20120828
  Transmission Date: 20130627
  Serious: Yes (Other)
  Sender: FDA-Public Use
  Company Number: CA-ARROW-2012-14845

PATIENT
  Age: 60 Year
  Sex: Male

DRUGS (4)
  1. MIDAZOLAM [Suspect]
     Indication: STATUS EPILEPTICUS
     Dosage: 30 mg, q1h
     Route: 042
  2. LEVETIRACETAM (UNKNOWN) [Suspect]
     Indication: STATUS EPILEPTICUS
     Dosage: 1500 mg, bid
     Route: 042
  3. PROPOFOL [Suspect]
     Indication: STATUS EPILEPTICUS
     Dosage: 50 ug/kg,  every min
     Route: 065
  4. PHENYTOIN [Suspect]
     Indication: STATUS EPILEPTICUS
     Dosage: UNK
     Route: 042

REACTIONS (2)
  - Hypotension [Recovered/Resolved]
  - Drug ineffective [Recovered/Resolved]
